FAERS Safety Report 7773092-X (Version None)
Quarter: 2011Q3

REPORT INFORMATION
  Report Type: 
  Country: None (occurrence: None)
  Receive Date: 20110922
  Receipt Date: 20100827
  Transmission Date: 20111222
  Serious: No
  Sender: FDA-Public Use
  Company Number: US-ASTRAZENECA-2007UW25225

PATIENT
  Age: 12867 Day
  Sex: Male

DRUGS (20)
  1. HALOPERIDOL [Concomitant]
     Dates: start: 20070222
  2. METRONIDAZOLE [Concomitant]
     Dates: start: 20061024
  3. FLUTICASONE PROPIONATE [Concomitant]
     Dates: start: 20070209
  4. TRAZODONE HYDROCHLORIDE [Concomitant]
  5. CIPROFLOXACIN [Concomitant]
     Dates: start: 20060826
  6. NYSTATIN [Concomitant]
     Dates: start: 20050207
  7. SEROQUEL [Suspect]
     Route: 048
     Dates: start: 20060404, end: 20061023
  8. TRAZODONE HYDROCHLORIDE [Concomitant]
     Dosage: STRENGTH - 100 - 150 MG
     Dates: start: 20060404
  9. PROTONIX [Concomitant]
     Dates: start: 20060826
  10. LORAZEPAM [Concomitant]
     Dates: start: 20070222
  11. HALOPERIDOL [Concomitant]
     Dates: start: 20060101
  12. CLONIDINE [Concomitant]
     Dates: start: 20060814
  13. OXYCONTIN [Concomitant]
     Dosage: STRENGTH - 20 - 40 MG
     Dates: start: 20060814
  14. METHADONE HCL [Concomitant]
     Dates: start: 20050409
  15. SEROQUEL [Suspect]
     Indication: DEPRESSION
     Dosage: 100 MG TO 300 MG
     Route: 048
     Dates: start: 20060401, end: 20061011
  16. OXYCODONE HCL [Concomitant]
     Dates: start: 20060814
  17. LYRICA [Concomitant]
     Dates: start: 20060814
  18. PREVACID [Concomitant]
     Dates: start: 20050412
  19. ZYPREXA [Concomitant]
     Indication: DEPRESSION
     Dates: end: 20070131
  20. CLONAZEPAM [Concomitant]
     Dates: start: 20060826

REACTIONS (2)
  - TYPE 2 DIABETES MELLITUS [None]
  - DIABETIC COMPLICATION [None]
